FAERS Safety Report 7368348-9 (Version None)
Quarter: 2011Q1

REPORT INFORMATION
  Report Type: 
  Country: None (occurrence: None)
  Receive Date: 20110323
  Receipt Date: 20110322
  Transmission Date: 20110831
  Serious: No
  Sender: FDA-Public Use
  Company Number: US-PFIZER INC-US-WYE-H14929210

PATIENT

DRUGS (2)
  1. HEPARIN [Concomitant]
  2. PROTONIX [Suspect]
     Dosage: UNK
     Route: 065

REACTIONS (2)
  - THROMBOCYTOPENIA [None]
  - HAEMORRHAGE [None]
